FAERS Safety Report 12645420 (Version 2)
Quarter: 2021Q3

REPORT INFORMATION
  Report Type: Spontaneous
  Country: US (occurrence: US)
  Receive Date: 20160811
  Receipt Date: 20210817
  Transmission Date: 20211014
  Serious: No
  Sender: FDA-Public Use
  Company Number: US-JAZZ-2016-US-004566

PATIENT
  Age: 20 Year
  Sex: Female

DRUGS (22)
  1. XYREM [Suspect]
     Active Substance: SODIUM OXYBATE
     Indication: NARCOLEPSY
     Dosage: 4.5 G, BID
     Route: 048
     Dates: start: 200912, end: 2010
  2. LEXAPRO [Concomitant]
     Active Substance: ESCITALOPRAM OXALATE
  3. PROVIGIL [Concomitant]
     Active Substance: MODAFINIL
  4. EQUETRO [Concomitant]
     Active Substance: CARBAMAZEPINE
  5. TRETINOIN. [Concomitant]
     Active Substance: TRETINOIN
  6. IMITREX [Concomitant]
     Active Substance: SUMATRIPTAN SUCCINATE
  7. ABILIFY [Concomitant]
     Active Substance: ARIPIPRAZOLE
  8. ACTICLATE [Concomitant]
     Active Substance: DOXYCYCLINE HYCLATE
  9. TROKENDI [Concomitant]
     Active Substance: TOPIRAMATE
  10. TOPIRAMATE. [Concomitant]
     Active Substance: TOPIRAMATE
  11. IBUPROFEN. [Suspect]
     Active Substance: IBUPROFEN
  12. ACZONE [Concomitant]
     Active Substance: DAPSONE
  13. BELVIQ [Concomitant]
     Active Substance: LORCASERIN HYDROCHLORIDE
  14. INTUNIV [Concomitant]
     Active Substance: GUANFACINE HYDROCHLORIDE
  15. LEVOTHYROXINE SODIUM. [Concomitant]
     Active Substance: LEVOTHYROXINE SODIUM
  16. METFORMIN HCL [Concomitant]
     Active Substance: METFORMIN HYDROCHLORIDE
  17. NUVIGIL [Concomitant]
     Active Substance: ARMODAFINIL
  18. XYREM [Suspect]
     Active Substance: SODIUM OXYBATE
     Indication: CATAPLEXY
     Dosage: 4.5 G, BID
     Route: 048
     Dates: start: 201108
  19. FLONASE [Concomitant]
     Active Substance: FLUTICASONE PROPIONATE
  20. EXCEDRIN [ACETYLSALICYLIC ACID;CAFFEINE;PARACETAMOL;SALICYLAMIDE] [Concomitant]
     Active Substance: ACETAMINOPHEN\ASPIRIN\CAFFEINE\SALICYLAMIDE
  21. SPIRONOLACTONE. [Concomitant]
     Active Substance: SPIRONOLACTONE
  22. DEPLIN [Concomitant]
     Active Substance: LEVOMEFOLATE CALCIUM

REACTIONS (2)
  - Weight increased [Unknown]
  - Blood pressure increased [Unknown]

NARRATIVE: CASE EVENT DATE: 200912
